FAERS Safety Report 20649840 (Version 1)
Quarter: 2022Q1

REPORT INFORMATION
  Report Type: Spontaneous
  Country: US (occurrence: US)
  Receive Date: 20220329
  Receipt Date: 20220329
  Transmission Date: 20220423
  Serious: No
  Sender: FDA-Public Use
  Company Number: US-LUPIN PHARMACEUTICALS INC.-2022-04307

PATIENT
  Sex: Female
  Weight: 70.748 kg

DRUGS (5)
  1. DIVALPROEX SODIUM [Suspect]
     Active Substance: DIVALPROEX SODIUM
     Indication: Bipolar disorder
     Dosage: 2 DOSAGE FORM, QD
     Route: 048
     Dates: start: 2015
  2. DIVALPROEX SODIUM [Suspect]
     Active Substance: DIVALPROEX SODIUM
     Dosage: 2 DOSAGE FORM, QD (NEW PRESCRIPTION)
     Route: 048
     Dates: start: 20220315
  3. ESTROGENS [Concomitant]
     Active Substance: ESTROGENS
     Indication: Menopause
     Dosage: UNK
     Route: 061
  4. QUETIAPINE FUMARATE [Concomitant]
     Active Substance: QUETIAPINE FUMARATE
     Indication: Bipolar disorder
     Dosage: 50 MG, BID  (ONE IN THE MORNING AND ONE IN NIGHT)
     Route: 048
  5. QUETIAPINE FUMARATE [Concomitant]
     Active Substance: QUETIAPINE FUMARATE
     Dosage: 300 MG, QD (AFTER BEFORE THE SLEEP)
     Route: 048

REACTIONS (3)
  - Drug level decreased [Unknown]
  - Drug ineffective [Unknown]
  - Product quality issue [Unknown]
